FAERS Safety Report 9386307 (Version 2)
Quarter: 2013Q3

REPORT INFORMATION
  Report Type: Spontaneous
  Country: US (occurrence: US)
  Receive Date: 20130708
  Receipt Date: 20130822
  Transmission Date: 20140515
  Serious: No
  Sender: FDA-Public Use
  Company Number: US-B.I. PHARMACEUTICALS,INC./RIDGEFIELD-2013-BI-19099BP

PATIENT
  Age: 64 Year
  Sex: Female
  Weight: 70 kg

DRUGS (9)
  1. COMBIVENT [Suspect]
     Indication: CHRONIC OBSTRUCTIVE PULMONARY DISEASE
     Dosage: STRENGTH: 18 MCG / 103 MCG;
     Route: 055
  2. SPIRIVA [Suspect]
     Indication: CHRONIC OBSTRUCTIVE PULMONARY DISEASE
     Dosage: 200 MG
     Route: 055
     Dates: start: 200610
  3. SPIRIVA [Suspect]
     Indication: SINUSITIS
  4. ASMANEX [Suspect]
     Indication: CHRONIC OBSTRUCTIVE PULMONARY DISEASE
     Dosage: 220 MCG
     Dates: start: 200610
  5. ASMANEX [Suspect]
     Indication: SINUSITIS
  6. TESSALON PERLE [Suspect]
     Indication: CHRONIC OBSTRUCTIVE PULMONARY DISEASE
     Dosage: 200 MG
     Route: 048
  7. TESSALON PERLE [Suspect]
     Indication: SINUSITIS
  8. AMLODIPINE BESYLATE [Concomitant]
     Indication: HYPERTENSION
     Dosage: 5 MG
     Route: 048
  9. ASPIRIN [Concomitant]
     Dosage: 81 MG
     Route: 048

REACTIONS (10)
  - Increased upper airway secretion [Recovered/Resolved]
  - Choking [Recovered/Resolved]
  - Myalgia [Recovered/Resolved]
  - Insomnia [Recovered/Resolved]
  - Headache [Recovered/Resolved]
  - Drug administration error [Not Recovered/Not Resolved]
  - Product quality issue [Recovered/Resolved]
  - Headache [Recovered/Resolved with Sequelae]
  - Increased upper airway secretion [Recovered/Resolved with Sequelae]
  - Myalgia [Recovered/Resolved with Sequelae]
